FAERS Safety Report 8045204-4 (Version None)
Quarter: 2012Q1

REPORT INFORMATION
  Report Type: 
  Country: None (occurrence: None)
  Receive Date: 20120113
  Receipt Date: 20120111
  Transmission Date: 20120608
  Serious: No
  Sender: FDA-Public Use
  Company Number: JP-ABBOTT-11P-087-0881823-00

PATIENT
  Age: 71 Year
  Sex: Female

DRUGS (3)
  1. HUMIRA [Suspect]
     Indication: RHEUMATOID ARTHRITIS
     Route: 058
     Dates: start: 20100406, end: 20111110
  2. PREDNISOLONE [Concomitant]
     Indication: RHEUMATOID ARTHRITIS
     Dates: end: 20111027
  3. TACROLIMUS [Concomitant]
     Indication: RHEUMATOID ARTHRITIS
     Dates: end: 20111027

REACTIONS (2)
  - IDIOPATHIC THROMBOCYTOPENIC PURPURA [None]
  - HAEMORRHAGIC DIATHESIS [None]
